FAERS Safety Report 7288727-8 (Version None)
Quarter: 2011Q1

REPORT INFORMATION
  Report Type: 
  Country: None (occurrence: None)
  Receive Date: 20110211
  Receipt Date: 20110202
  Transmission Date: 20110831
  Serious: Yes (Other)
  Sender: FDA-Public Use
  Company Number: PHHY2011SE08147

PATIENT
  Age: 74 Year
  Sex: Female

DRUGS (7)
  1. ALVEDON [Concomitant]
     Dosage: 500 MG, UNK
  2. FEMARA [Concomitant]
     Dosage: 2.5 MG, UNK
  3. OMEPRAZOLE [Concomitant]
  4. BONDRONAT [Suspect]
     Indication: METASTASES TO BONE
  5. IBUMETIN [Concomitant]
     Dosage: 400 MG, UNK
  6. TRAMADOL HCL [Concomitant]
  7. ZOMETA [Suspect]
     Indication: METASTASES TO BONE
     Dosage: 4 MG, PER 5 ML
     Dates: start: 20050101

REACTIONS (3)
  - NEOPLASM MALIGNANT [None]
  - GINGIVAL INFECTION [None]
  - OSTEONECROSIS OF JAW [None]
